FAERS Safety Report 13559010 (Version 1)
Quarter: 2017Q2

REPORT INFORMATION
  Report Type: Spontaneous
  Country: US (occurrence: US)
  Receive Date: 20170518
  Receipt Date: 20170518
  Transmission Date: 20170830
  Serious: Yes (Other)
  Sender: FDA-Public Use
  Company Number: US-PFIZER INC-2017205354

PATIENT
  Age: 88 Year
  Sex: Male

DRUGS (18)
  1. DASATINIB [Concomitant]
     Active Substance: DASATINIB
     Dosage: 100 MG, DAILY
     Dates: start: 201107
  2. IMATINIB [Concomitant]
     Active Substance: IMATINIB
     Dosage: 400 MG, DAILY
     Dates: start: 201102
  3. TAMSULOSIN [Concomitant]
     Active Substance: TAMSULOSIN
     Indication: CHRONIC MYELOID LEUKAEMIA
     Dosage: UNK
  4. BOSUTINIB [Suspect]
     Active Substance: BOSUTINIB
     Indication: CHRONIC MYELOID LEUKAEMIA
     Dosage: 500 MG, DAILY
     Dates: start: 201401
  5. BOSUTINIB [Interacting]
     Active Substance: BOSUTINIB
     Dosage: 200 MG, DAILY
     Dates: start: 201405
  6. IMATINIB [Concomitant]
     Active Substance: IMATINIB
     Indication: CHRONIC MYELOID LEUKAEMIA
     Dosage: 400 MG, DAILY
     Dates: start: 201011
  7. IMATINIB [Concomitant]
     Active Substance: IMATINIB
     Dosage: 400 MG, DAILY
     Dates: start: 201111
  8. DIAZEPAM. [Concomitant]
     Active Substance: DIAZEPAM
     Indication: CHRONIC MYELOID LEUKAEMIA
     Dosage: UNK
  9. BOSUTINIB [Interacting]
     Active Substance: BOSUTINIB
     Dosage: 500 MG, WEEKLY (THREE DAYS PER WEEK)
  10. IMATINIB [Concomitant]
     Active Substance: IMATINIB
     Dosage: 300 MG, DAILY
     Dates: start: 201307
  11. NILOTINIB [Concomitant]
     Active Substance: NILOTINIB
     Indication: CHRONIC MYELOID LEUKAEMIA
     Dosage: 400 MG, 2X/DAY
     Dates: start: 201109
  12. NILOTINIB [Concomitant]
     Active Substance: NILOTINIB
     Dosage: 400 MG, 2X/DAY
     Dates: start: 201110
  13. BOSUTINIB [Interacting]
     Active Substance: BOSUTINIB
     Dosage: 300 MG, DAILY (REMAINED AT THIS DOSE UNTIL LAST REVIE)
     Dates: start: 201502
  14. RABEPRAZOLE [Interacting]
     Active Substance: RABEPRAZOLE
     Indication: CHRONIC MYELOID LEUKAEMIA
     Dosage: UNK
  15. IMATINIB [Concomitant]
     Active Substance: IMATINIB
     Dosage: 400 MG, DAILY
     Dates: start: 201308
  16. DASATINIB [Concomitant]
     Active Substance: DASATINIB
     Indication: CHRONIC MYELOID LEUKAEMIA
     Dosage: 100 MG, DAILY
     Dates: start: 201104
  17. NILOTINIB [Concomitant]
     Active Substance: NILOTINIB
     Dosage: 400 MG, DAILY
  18. FINASTERIDE. [Concomitant]
     Active Substance: FINASTERIDE
     Indication: CHRONIC MYELOID LEUKAEMIA
     Dosage: UNK

REACTIONS (2)
  - Inappropriate antidiuretic hormone secretion [Unknown]
  - Drug interaction [Unknown]
